FAERS Safety Report 20859024 (Version 1)
Quarter: 2022Q2

REPORT INFORMATION
  Report Type: Spontaneous
  Country: US (occurrence: US)
  Receive Date: 20220523
  Receipt Date: 20220523
  Transmission Date: 20220720
  Serious: Yes (Other)
  Sender: FDA-Public Use
  Company Number: US-ABBVIE-22K-163-4403646-00

PATIENT

DRUGS (6)
  1. LUPRON DEPOT [Suspect]
     Active Substance: LEUPROLIDE ACETATE
     Indication: Product used for unknown indication
     Route: 065
  2. ANASTROZOLE [Suspect]
     Active Substance: ANASTROZOLE
     Indication: Product used for unknown indication
     Route: 065
     Dates: start: 201508
  3. IBRANCE [Suspect]
     Active Substance: PALBOCICLIB
     Indication: Product used for unknown indication
     Route: 065
     Dates: start: 201508
  4. IBRANCE [Suspect]
     Active Substance: PALBOCICLIB
     Route: 065
  5. IBRANCE [Suspect]
     Active Substance: PALBOCICLIB
     Route: 065
  6. LETROZOLE [Concomitant]
     Active Substance: LETROZOLE
     Indication: Product used for unknown indication

REACTIONS (6)
  - Nasal operation [Unknown]
  - Abdominal discomfort [Unknown]
  - Mood altered [Unknown]
  - Migraine [Unknown]
  - Hypersensitivity [Unknown]
  - Sinusitis [Unknown]
